FAERS Safety Report 5874234-3 (Version None)
Quarter: 2008Q3

REPORT INFORMATION
  Report Type: 
  Country: None (occurrence: None)
  Receive Date: 20080908
  Receipt Date: 20080828
  Transmission Date: 20090109
  Serious: Yes (Congenital Anomaly)
  Sender: FDA-Public Use
  Company Number: CN-JNJFOC-20080900054

PATIENT
  Sex: Male
  Weight: 1.4 kg

DRUGS (2)
  1. GYNO-DAKTARIN [Suspect]
  2. GYNO-DAKTARIN [Suspect]
     Indication: DRUG EXPOSURE DURING PREGNANCY

REACTIONS (1)
  - PREMATURE BABY [None]
